FAERS Safety Report 21581962 (Version 1)
Quarter: 2022Q4

REPORT INFORMATION
  Report Type: Spontaneous
  Country: US (occurrence: US)
  Receive Date: 20221111
  Receipt Date: 20221111
  Transmission Date: 20230113
  Serious: No
  Sender: FDA-Public Use
  Company Number: US-APOTEX-2022AP008777

PATIENT
  Sex: Female

DRUGS (3)
  1. FENTANYL TRANSDERMAL SYSTEM [Suspect]
     Active Substance: FENTANYL
     Indication: Pain
     Dosage: 1 PATCH, TID
     Route: 062
     Dates: start: 202205, end: 202206
  2. VYVANSE [Concomitant]
     Active Substance: LISDEXAMFETAMINE DIMESYLATE
     Indication: Attention deficit hyperactivity disorder
     Dosage: 2 DOSAGE FORM, QD
     Route: 065
  3. HYDROCODONE [Concomitant]
     Active Substance: HYDROCODONE
     Indication: Breakthrough pain
     Dosage: UNK UNK, PRN
     Route: 065

REACTIONS (3)
  - Application site rash [Recovered/Resolved]
  - Pruritus [Recovered/Resolved]
  - Drug effect less than expected [Unknown]
